FAERS Safety Report 18325258 (Version 3)
Quarter: 2020Q4

REPORT INFORMATION
  Report Type: Report from Study
  Country: None (occurrence: NL)
  Receive Date: 20200928
  Receipt Date: 20201103
  Transmission Date: 20210113
  Serious: Yes (Hospitalization, Other)
  Sender: FDA-Public Use
  Company Number: NL-ABBVIE-20K-114-3582118-00

PATIENT
  Age: 57 Year
  Sex: Male

DRUGS (3)
  1. DUODOPA [Suspect]
     Active Substance: CARBIDOPA\LEVODOPA
     Dosage: MD: 8.8 ML; CD: 3.3 ML/H; ED: 2.5 ML, REMAINED AT 16 HOURS
     Route: 050
     Dates: start: 2020
  2. DUODOPA [Suspect]
     Active Substance: CARBIDOPA\LEVODOPA
     Dosage: MD: 8.8 ML; CD: 3.2 ML/H; ED: 1.0 ML, REMAINED AT 16 HR
     Route: 050
     Dates: start: 2020, end: 2020
  3. DUODOPA [Suspect]
     Active Substance: CARBIDOPA\LEVODOPA
     Indication: PARKINSON^S DISEASE
     Dosage: MD 8.8 ML, CD 3.1 ML/HR, ED 1.0 ML,REMAINED AT 16 HR
     Route: 050
     Dates: start: 20200921, end: 2020

REACTIONS (4)
  - Pneumoperitoneum [Unknown]
  - Stoma site pain [Recovering/Resolving]
  - Procedural pain [Not Recovered/Not Resolved]
  - Muscle spasms [Not Recovered/Not Resolved]

NARRATIVE: CASE EVENT DATE: 2020
